FAERS Safety Report 4269687-0 (Version None)
Quarter: 2004Q1

REPORT INFORMATION
  Report Type: 
  Country: None (occurrence: None)
  Receive Date: 20040112
  Receipt Date: 20031126
  Transmission Date: 20041129
  Serious: Yes (Hospitalization)
  Sender: FDA-Public Use
  Company Number: US-JNJFOC-20031201918

PATIENT
  Age: 53 Year
  Sex: Male

DRUGS (3)
  1. LEVOFLOXACIN [Suspect]
     Indication: PNEUMONIA
     Dosage: SEE IMAGE
     Route: 042
  2. FLUCONAZOLE [Suspect]
     Indication: CANDIDIASIS
     Dosage: 400 MG, INTRAVENOUS
     Route: 042
  3. PIPERACILLIN-TAZOBACTAM (PIP/TAZO) [Concomitant]

REACTIONS (5)
  - DRUG INTERACTION [None]
  - ELECTROCARDIOGRAM QT CORRECTED INTERVAL PROLONGED [None]
  - ELECTROCARDIOGRAM QT PROLONGED [None]
  - MEDICATION ERROR [None]
  - TORSADE DE POINTES [None]
